FAERS Safety Report 16060640 (Version 1)
Quarter: 2019Q2

REPORT INFORMATION
  Report Type: Spontaneous
  Country: US (occurrence: US)
  Receive Date: 20190312
  Receipt Date: 20190312
  Transmission Date: 20190711
  Serious: Yes (Hospitalization)
  Sender: FDA-Public Use
  Company Number: None

PATIENT
  Age: 60 Year
  Sex: Female
  Weight: 58.7 kg

DRUGS (6)
  1. PANTAPRAZOLE [Concomitant]
     Active Substance: PANTOPRAZOLE SODIUM
     Dates: start: 20190128
  2. DEXAMETASONE [Concomitant]
     Active Substance: DEXAMETHASONE
     Dates: start: 20190128, end: 20190311
  3. KEPPRA [Concomitant]
     Active Substance: LEVETIRACETAM
     Dates: start: 20181214
  4. LORAZEPAM. [Concomitant]
     Active Substance: LORAZEPAM
     Dates: start: 20151228
  5. DISULFIRAM. [Suspect]
     Active Substance: DISULFIRAM
     Indication: GLIOBLASTOMA MULTIFORME
     Route: 048
     Dates: start: 20190128, end: 20190309
  6. COPPER GLUCONATE [Concomitant]
     Active Substance: COPPER GLUCONATE
     Dates: start: 20190128, end: 20190309

REACTIONS (4)
  - Fatigue [None]
  - Jaundice [None]
  - Dizziness [None]
  - Transaminases increased [None]

NARRATIVE: CASE EVENT DATE: 20190309
